FAERS Safety Report 23656896 (Version 1)
Quarter: 2024Q1

REPORT INFORMATION
  Report Type: Spontaneous
  Country: JP (occurrence: JP)
  Receive Date: 20240321
  Receipt Date: 20240321
  Transmission Date: 20240410
  Serious: Yes (Life-Threatening, Other)
  Sender: FDA-Public Use
  Company Number: JP-BRISTOL-MYERS SQUIBB COMPANY-2024-041315

PATIENT
  Age: 44 Year
  Sex: Male

DRUGS (3)
  1. YERVOY [Suspect]
     Active Substance: IPILIMUMAB
     Indication: Non-small cell lung cancer
     Route: 041
  2. OPDIVO [Suspect]
     Active Substance: NIVOLUMAB
     Indication: Non-small cell lung cancer
  3. PACLITAXEL [Suspect]
     Active Substance: PACLITAXEL
     Indication: Non-small cell lung cancer

REACTIONS (12)
  - Enterocolitis [Unknown]
  - Diarrhoea [Unknown]
  - Pyrexia [Unknown]
  - COVID-19 [Unknown]
  - Candida test positive [Unknown]
  - Shock symptom [Unknown]
  - Ventricular hypokinesia [Unknown]
  - Infection [Unknown]
  - Cytokine release syndrome [Unknown]
  - Myocarditis [Unknown]
  - Oesophagomediastinal fistula [Unknown]
  - Mediastinitis [Unknown]
